FAERS Safety Report 8835338 (Version 1)
Quarter: 2012Q4

REPORT INFORMATION
  Report Type: 
  Country: JP (occurrence: JP)
  Receive Date: 20121011
  Receipt Date: 20121011
  Transmission Date: 20130627
  Serious: Yes (Other)
  Sender: FDA-Public Use
  Company Number: JP-ROCHE-1120590

PATIENT
  Age: 71 Year
  Sex: Male
  Weight: 57 kg

DRUGS (8)
  1. FLUMAZENIL [Suspect]
     Indication: PRODUCT USED FOR UNKNOWN INDICATION
     Route: 042
     Dates: start: 20120806, end: 20120806
  2. LYRICA [Concomitant]
     Route: 065
     Dates: start: 20120615
  3. TRAMADOL [Concomitant]
     Route: 065
     Dates: start: 20120525
  4. ACETAMINOPHEN [Concomitant]
     Route: 065
     Dates: start: 20120525
  5. MAGLAX [Concomitant]
     Route: 065
     Dates: start: 20120525
  6. PANTOSIN [Concomitant]
     Route: 065
     Dates: start: 20120615
  7. DORMICUM (INJ) [Concomitant]
     Route: 065
     Dates: start: 20120806, end: 20120806
  8. PENTAGIN [Concomitant]
     Route: 065
     Dates: start: 20120806, end: 20120806

REACTIONS (4)
  - Haemorrhage subcutaneous [Recovering/Resolving]
  - Pain in extremity [Unknown]
  - Oedema peripheral [Recovering/Resolving]
  - Extravasation [Unknown]
